FAERS Safety Report 9529226 (Version 1)
Quarter: 2013Q1

REPORT INFORMATION
  Report Type: Spontaneous
  Country: US (occurrence: None)
  Receive Date: 20130318
  Receipt Date: 20130318
  Transmission Date: 20140127
  Serious: Yes (Other)
  Sender: FDA-Public Use
  Company Number: 1207USA010851

PATIENT
  Sex: Female

DRUGS (1)
  1. PEGINTRON (PEGINTERFERON ALFA-2B)POWDER FOR INJECTION [Suspect]

REACTIONS (1)
  - Exposure via father [None]
